FAERS Safety Report 25528868 (Version 1)
Quarter: 2025Q3

REPORT INFORMATION
  Report Type: Spontaneous
  Country: ME (occurrence: ME)
  Receive Date: 20250708
  Receipt Date: 20250708
  Transmission Date: 20251021
  Serious: Yes (Other)
  Sender: RANBAXY
  Company Number: ME-SUN PHARMACEUTICAL INDUSTRIES LTD-2025RR-515386

PATIENT
  Age: 67 Year
  Sex: Female

DRUGS (5)
  1. METHIMAZOLE [Suspect]
     Active Substance: METHIMAZOLE
     Indication: Graves^ disease
     Dosage: 30 MILLIGRAM, DAILY
     Route: 065
  2. PROPYLTHIOURACIL [Suspect]
     Active Substance: PROPYLTHIOURACIL
     Indication: Graves^ disease
     Dosage: 300 MILLIGRAM, DAILY
     Route: 065
  3. PREDNISONE [Suspect]
     Active Substance: PREDNISONE
     Indication: Graves^ disease
     Route: 065
  4. RIVAROXABAN [Concomitant]
     Active Substance: RIVAROXABAN
     Indication: Embolism venous
     Dosage: 20 MILLIGRAM, DAILY
     Route: 065
  5. PROPRANOLOL [Concomitant]
     Active Substance: PROPRANOLOL HYDROCHLORIDE
     Indication: Graves^ disease
     Dosage: 80 MILLIGRAM, DAILY
     Route: 065

REACTIONS (3)
  - Urticaria [Recovering/Resolving]
  - Agranulocytosis [Recovering/Resolving]
  - Drug ineffective [Unknown]
